FAERS Safety Report 7340561-6 (Version None)
Quarter: 2011Q1

REPORT INFORMATION
  Report Type: 
  Country: None (occurrence: None)
  Receive Date: 20110309
  Receipt Date: 20110302
  Transmission Date: 20110831
  Serious: Yes (Other)
  Sender: FDA-Public Use
  Company Number: CA-PFIZER INC-2011045781

PATIENT
  Sex: Female

DRUGS (13)
  1. TRACLEER [Concomitant]
     Dosage: 125 MG, 2X/DAY
  2. REVATIO [Suspect]
     Indication: PULMONARY HYPERTENSION
     Dosage: 20 UNK, UNK
  3. SYNTHROID [Concomitant]
     Dosage: 0.125 MG, 1X/DAY (MORNING)
  4. VITAMIN E [Concomitant]
     Dosage: UNK
  5. ARTHROTEC [Concomitant]
     Dosage: 75/200 MCG, 2X/DAY
  6. LANOXIN [Concomitant]
     Dosage: 0.125 MG, UNK
  7. AZ A [Concomitant]
     Dosage: 50 MG, 1 TABLET IN THE MORNING AND 2 TABLETS AT BEDTIME
  8. CALCIUM [Concomitant]
     Dosage: 500 MG, UNK
  9. GLUCOSAMINE W/CHONDROITIN SULFATES [Concomitant]
     Dosage: 900 MG, UNK
  10. HYDROXYCHLOROQUINE [Concomitant]
     Dosage: 400 MG, (2X200MG) IN THE MORNING
  11. ASA [Concomitant]
     Dosage: 81 MG, 1X/DAY IN THE MORNING
  12. SILDENAFIL [Suspect]
     Indication: PULMONARY HYPERTENSION
  13. VITAMIN D [Concomitant]
     Dosage: UNK

REACTIONS (1)
  - PULMONARY HYPERTENSION [None]
